FAERS Safety Report 4398175-6 (Version None)
Quarter: 2004Q3

REPORT INFORMATION
  Report Type: 
  Country: None (occurrence: None)
  Receive Date: 20040715
  Receipt Date: 20040608
  Transmission Date: 20050211
  Serious: Yes (Hospitalization)
  Sender: FDA-Public Use
  Company Number: PHEH2004US06336

PATIENT
  Age: 82 Year
  Sex: Female

DRUGS (11)
  1. GLEEVEC [Suspect]
     Indication: CHRONIC MYELOID LEUKAEMIA
     Dosage: 400 MG, QD
     Route: 048
     Dates: start: 20040430, end: 20040511
  2. VITAMIN C [Concomitant]
     Dosage: UNK, QD
     Route: 048
  3. MULTI-VITAMINS [Concomitant]
     Dosage: UNK, QD
     Route: 048
  4. CITRACAL [Concomitant]
     Dosage: UNK, QD
     Route: 048
  5. LOTREL [Concomitant]
     Indication: HYPERTENSION
     Dosage: UNK, QD
     Route: 048
  6. COUMADIN [Concomitant]
     Indication: ATRIAL FIBRILLATION
     Dosage: 3 MG, QD
     Route: 048
  7. ALLOPURINOL [Concomitant]
     Indication: TUMOUR LYSIS SYNDROME
     Dosage: 300 MG, QD
     Route: 048
     Dates: end: 20040514
  8. EPOGEN [Concomitant]
     Indication: ANAEMIA
     Dosage: 40000 IU, QW
     Route: 058
  9. ULTRACET [Concomitant]
     Indication: PAIN
     Dosage: UNK, PRN
     Route: 048
  10. TYLENOL [Concomitant]
     Dosage: UNK, PRN
     Route: 048
  11. ISOSORBIDE [Concomitant]
     Dosage: 30 MG, QD
     Route: 048

REACTIONS (4)
  - ANAEMIA [None]
  - BRONCHITIS [None]
  - CARDIAC FAILURE CONGESTIVE [None]
  - OEDEMA [None]
